FAERS Safety Report 14044502 (Version 1)
Quarter: 2017Q4

REPORT INFORMATION
  Report Type: Spontaneous
  Country: US (occurrence: US)
  Receive Date: 20171005
  Receipt Date: 20171005
  Transmission Date: 20180321
  Serious: No
  Sender: FDA-Public Use
  Company Number: None

PATIENT
  Sex: Female
  Weight: 78.75 kg

DRUGS (14)
  1. LEVOTHYROXINE. [Concomitant]
     Active Substance: LEVOTHYROXINE
  2. MULTIVITAMIN [Concomitant]
     Active Substance: VITAMINS
  3. VITAMIN D3 [Concomitant]
     Active Substance: CHOLECALCIFEROL
  4. CHONDROITIN [Concomitant]
     Active Substance: CHONDROITIN
  5. MSM [Concomitant]
     Active Substance: DIMETHYL SULFONE
  6. TURMERIC [Concomitant]
     Active Substance: HERBALS\TURMERIC
  7. GINGER. [Concomitant]
     Active Substance: GINGER
  8. DIGESTIVE ENZYMES [Concomitant]
     Active Substance: UNSPECIFIED INGREDIENT
  9. XYZAL [Concomitant]
     Active Substance: LEVOCETIRIZINE DIHYDROCHLORIDE
  10. SUCRALFATE. [Suspect]
     Active Substance: SUCRALFATE
     Indication: ULCER HAEMORRHAGE
     Dosage: ?          QUANTITY:1 TABLET(S); 4 TIMES A DAY ORAL?
     Route: 048
     Dates: start: 20170929
  11. BLISOVI FE [Concomitant]
  12. BIOTIN [Concomitant]
     Active Substance: BIOTIN
  13. PANTOPRAZOLE [Concomitant]
     Active Substance: PANTOPRAZOLE
  14. GLUCOSAMINE [Concomitant]
     Active Substance: GLUCOSAMINE

REACTIONS (4)
  - Nausea [None]
  - Condition aggravated [None]
  - Gastrointestinal pain [None]
  - Abdominal discomfort [None]

NARRATIVE: CASE EVENT DATE: 20171004
